FAERS Safety Report 25078941 (Version 2)
Quarter: 2025Q3

REPORT INFORMATION
  Report Type: Report from Study
  Country: JP (occurrence: JP)
  Receive Date: 20250314
  Receipt Date: 20250911
  Transmission Date: 20251021
  Serious: Yes (Death, Other)
  Sender: GILEAD
  Company Number: JP-GILEAD-2024-0661557

PATIENT
  Age: 39 Year
  Sex: Female

DRUGS (1)
  1. AXICABTAGENE CILOLEUCEL [Suspect]
     Active Substance: AXICABTAGENE CILOLEUCEL
     Indication: Product used for unknown indication
     Route: 041
     Dates: start: 20240318, end: 20240318

REACTIONS (10)
  - Disease progression [Fatal]
  - Epilepsy [Unknown]
  - Cytokine release syndrome [Recovered/Resolved]
  - Depressed level of consciousness [Recovered/Resolved]
  - Immune effector cell-associated neurotoxicity syndrome [Recovered/Resolved]
  - Cognitive disorder [Recovered/Resolved]
  - Status epilepticus [Unknown]
  - Amnestic disorder [Unknown]
  - Pyrexia [Recovered/Resolved]
  - COVID-19 [Unknown]

NARRATIVE: CASE EVENT DATE: 20240319
